FAERS Safety Report 4769115-2 (Version None)
Quarter: 2005Q3

REPORT INFORMATION
  Report Type: 
  Country: None (occurrence: None)
  Receive Date: 20050912
  Receipt Date: 20050110
  Transmission Date: 20060218
  Serious: Yes (Life-Threatening, Hospitalization)
  Sender: FDA-Public Use
  Company Number: 2005-BP-00342BP

PATIENT
  Age: 28 Year
  Sex: Male
  Weight: 78.9 kg

DRUGS (2)
  1. VIRAMUNE [Suspect]
     Indication: HIV INFECTION
     Dosage: 400 MG (200 MG, 200 MG QD X 14 DAYS, THEN BID)
     Dates: start: 20040521, end: 20040618
  2. COMBIVIR [Suspect]
     Indication: HIV INFECTION

REACTIONS (2)
  - HEPATIC ENZYME INCREASED [None]
  - HEPATITIS [None]
